FAERS Safety Report 4938418-0 (Version None)
Quarter: 2006Q1

REPORT INFORMATION
  Report Type: 
  Country: None (occurrence: None)
  Receive Date: 20060309
  Receipt Date: 20060227
  Transmission Date: 20060701
  Serious: Yes (Other)
  Sender: FDA-Public Use
  Company Number: ES-BRISTOL-MYERS SQUIBB COMPANY-13304613

PATIENT
  Age: 67 Year
  Sex: Female

DRUGS (6)
  1. ENDOXAN TABS 50 MG [Suspect]
     Indication: DRUG USE FOR UNKNOWN INDICATION
     Route: 048
     Dates: start: 20050624, end: 20051015
  2. URBASON [Concomitant]
     Route: 048
     Dates: start: 20050624
  3. SEGURIL [Concomitant]
     Route: 048
     Dates: start: 20050624
  4. ACETAMINOPHEN [Concomitant]
  5. NOLOTIL [Concomitant]
     Route: 048
  6. MOTILIUM [Concomitant]

REACTIONS (1)
  - HEPATITIS CHOLESTATIC [None]
